FAERS Safety Report 7604866-3 (Version None)
Quarter: 2011Q3

REPORT INFORMATION
  Report Type: 
  Country: None (occurrence: None)
  Receive Date: 20110712
  Receipt Date: 20110705
  Transmission Date: 20111222
  Serious: Yes (Other)
  Sender: FDA-Public Use
  Company Number: US-US-EMD SERONO, INC.-7069455

PATIENT
  Sex: Female

DRUGS (1)
  1. REBIF [Suspect]
     Indication: PRODUCT USED FOR UNKNOWN INDICATION
     Route: 058
     Dates: start: 20110511

REACTIONS (7)
  - DIARRHOEA [None]
  - ARTHRALGIA [None]
  - INJECTION SITE ERYTHEMA [None]
  - STAPHYLOCOCCAL INFECTION [None]
  - ABDOMINAL PAIN UPPER [None]
  - INSOMNIA [None]
  - INJECTION SITE HAEMATOMA [None]
